FAERS Safety Report 23203530 (Version 1)
Quarter: 2023Q4

REPORT INFORMATION
  Report Type: Spontaneous
  Country: CA (occurrence: CA)
  Receive Date: 20231120
  Receipt Date: 20231120
  Transmission Date: 20240110
  Serious: Yes (Other)
  Sender: FDA-Public Use
  Company Number: CA-CELLTRION INC.-2023CA012080

PATIENT

DRUGS (6)
  1. INFLECTRA [Suspect]
     Active Substance: INFLIXIMAB-DYYB
     Indication: Crohn^s disease
     Dosage: 5 MG/KG (185 MG), NAIVE W0, INDUCTION W0,2,6 THEN Q8 WEEKS
     Route: 042
     Dates: start: 20230606, end: 20230606
  2. INFLECTRA [Suspect]
     Active Substance: INFLIXIMAB-DYYB
     Dosage: 5 MG/KG (185 MG), NAIVE W0, INDUCTION W0,2,6 THEN Q8 WEEKS
     Route: 042
     Dates: start: 20230621
  3. INFLECTRA [Suspect]
     Active Substance: INFLIXIMAB-DYYB
     Dosage: 205MG AFTER 4 WEEKS (WEEK 6)
     Route: 042
     Dates: start: 20230720
  4. INFLECTRA [Suspect]
     Active Substance: INFLIXIMAB-DYYB
     Dosage: 205MG AFTER 4 WEEKS (WEEK 6)
     Route: 042
     Dates: start: 20230720
  5. INFLECTRA [Suspect]
     Active Substance: INFLIXIMAB-DYYB
     Dosage: 200MG, EVERY 8 WEEKS
     Route: 042
     Dates: start: 20230914
  6. INFLECTRA [Suspect]
     Active Substance: INFLIXIMAB-DYYB
     Dosage: 5 MG/KG (225MG), EVERY 8 WEEKS
     Route: 042
     Dates: start: 20231109

REACTIONS (9)
  - Hypotension [Not Recovered/Not Resolved]
  - Shock [Recovered/Resolved]
  - Condition aggravated [Recovering/Resolving]
  - Fistula [Recovered/Resolved]
  - Nausea [Recovered/Resolved]
  - Vomiting [Recovered/Resolved]
  - Hyperhidrosis [Recovered/Resolved]
  - Dizziness [Recovered/Resolved]
  - Discomfort [Recovered/Resolved]

NARRATIVE: CASE EVENT DATE: 20230606
